FAERS Safety Report 22031548 (Version 1)
Quarter: 2023Q1

REPORT INFORMATION
  Report Type: Spontaneous
  Country: US (occurrence: US)
  Receive Date: 20230224
  Receipt Date: 20230224
  Transmission Date: 20230418
  Serious: Yes (Hospitalization, Other)
  Sender: FDA-Public Use
  Company Number: US-BRISTOL-MYERS SQUIBB COMPANY-2023-026840

PATIENT
  Age: 71 Year
  Sex: Female
  Weight: 77.11 kg

DRUGS (1)
  1. LENALIDOMIDE [Suspect]
     Active Substance: LENALIDOMIDE
     Indication: Myelofibrosis
     Dosage: QDON21DOFF7D
     Route: 048

REACTIONS (5)
  - Chronic kidney disease [Unknown]
  - Lactic acidosis [Unknown]
  - Encephalopathy [Unknown]
  - Hypertensive urgency [Unknown]
  - Off label use [Unknown]
